FAERS Safety Report 6737556-X (Version None)
Quarter: 2010Q2

REPORT INFORMATION
  Report Type: 
  Country: None (occurrence: None)
  Receive Date: 20100521
  Receipt Date: 20100521
  Transmission Date: 20101027
  Serious: Yes (Hospitalization)
  Sender: FDA-Public Use
  Company Number: None

PATIENT
  Age: 79 Year
  Sex: Female
  Weight: 52.1637 kg

DRUGS (7)
  1. REMICADE [Suspect]
  2. METHOTREXATE [Suspect]
  3. PROTONIX [Suspect]
  4. ASACOL [Suspect]
  5. LIPITOR [Suspect]
  6. DYAZIDE [Suspect]
  7. HORMONE REPLACEMENT [Suspect]

REACTIONS (1)
  - COLON CANCER [None]
